FAERS Safety Report 16766668 (Version 1)
Quarter: 2019Q3

REPORT INFORMATION
  Report Type: Spontaneous
  Country: NL (occurrence: NL)
  Receive Date: 20190903
  Receipt Date: 20190903
  Transmission Date: 20191005
  Serious: Yes (Hospitalization)
  Sender: FDA-Public Use
  Company Number: NL-MYLANLABS-2019M1081193

PATIENT
  Age: 44 Year
  Sex: Male

DRUGS (4)
  1. LYRICA [Suspect]
     Active Substance: PREGABALIN
     Indication: EPILEPSY
     Dosage: 525 MILLIGRAM (UNK MG, UNK)
     Route: 048
     Dates: start: 20050512
  2. CARBAMAZEPINE. [Suspect]
     Active Substance: CARBAMAZEPINE
     Indication: EPILEPSY
     Dosage: 1100 MILLIGRAM (UNK MG, UNK )
     Route: 048
     Dates: start: 19950101
  3. CARBAMAZEPINE. [Suspect]
     Active Substance: CARBAMAZEPINE
     Dosage: UNK
     Dates: start: 200809
  4. LYRICA [Suspect]
     Active Substance: PREGABALIN
     Dosage: 525 MILLIGRAM (525MG A DAY)
     Dates: start: 200808

REACTIONS (1)
  - Cerebrovascular accident [Recovering/Resolving]

NARRATIVE: CASE EVENT DATE: 20091004
